FAERS Safety Report 5271308-5 (Version None)
Quarter: 2007Q1

REPORT INFORMATION
  Report Type: 
  Country: None (occurrence: None)
  Receive Date: 20070316
  Receipt Date: 20070220
  Transmission Date: 20070707
  Serious: Yes (Hospitalization)
  Sender: FDA-Public Use
  Company Number: 2006BI014019

PATIENT
  Age: 50 Year
  Sex: Female
  Weight: 120 kg

DRUGS (2)
  1. AVONEX [Suspect]
     Indication: MULTIPLE SCLEROSIS
     Dosage: 30 UG;QW;IM
     Route: 030
     Dates: start: 20000101, end: 20060901
  2. VALSARTAN AND HYDROCHLOROTHIAZIDE [Concomitant]

REACTIONS (13)
  - ASTHENIA [None]
  - BLOOD URIC ACID INCREASED [None]
  - BONE MARROW DISORDER [None]
  - BONE PAIN [None]
  - BREAST CANCER [None]
  - INFLUENZA LIKE ILLNESS [None]
  - LYMPHADENOPATHY [None]
  - METASTASES TO BONE [None]
  - OESTROGEN RECEPTOR ASSAY POSITIVE [None]
  - PLASMACYTOMA [None]
  - PROGESTERONE RECEPTOR ASSAY NEGATIVE [None]
  - PYREXIA [None]
  - RIB FRACTURE [None]
